FAERS Safety Report 26108104 (Version 1)
Quarter: 2025Q4

REPORT INFORMATION
  Report Type: Spontaneous
  Country: JP (occurrence: JP)
  Receive Date: 20251201
  Receipt Date: 20251201
  Transmission Date: 20260118
  Serious: Yes (Other)
  Sender: OTSUKA
  Company Number: JP-MMM-Otsuka-JZ3I2QTS

PATIENT
  Age: 85 Year
  Sex: Male

DRUGS (1)
  1. BREXPIPRAZOLE [Suspect]
     Active Substance: BREXPIPRAZOLE
     Indication: Agitation
     Dosage: 0.5 MG
     Route: 065

REACTIONS (4)
  - Pneumonia [Unknown]
  - Decreased appetite [Unknown]
  - Pyrexia [Unknown]
  - Apathy [Unknown]
